APPROVED DRUG PRODUCT: SULFASALAZINE
Active Ingredient: SULFASALAZINE
Strength: 500MG
Dosage Form/Route: TABLET;ORAL
Application: A219046 | Product #001 | TE Code: AB
Applicant: RISING PHARMA HOLDINGS INC
Approved: Nov 4, 2025 | RLD: No | RS: No | Type: RX